FAERS Safety Report 18716631 (Version 1)
Quarter: 2021Q1

REPORT INFORMATION
  Report Type: Spontaneous
  Country: US (occurrence: US)
  Receive Date: 20210107
  Receipt Date: 20210107
  Transmission Date: 20210419
  Serious: No
  Sender: FDA-Public Use
  Company Number: None

PATIENT
  Age: 64 Year
  Sex: Male

DRUGS (1)
  1. LISINOPRIL (LISINOPRIL 40MG TAB) [Suspect]
     Active Substance: LISINOPRIL
     Indication: HYPERTENSION
     Dosage: OTHER DOSE:1 TAB ;?
     Route: 048
     Dates: start: 20200228, end: 20201128

REACTIONS (4)
  - Peripheral swelling [None]
  - Angioedema [None]
  - Pain in extremity [None]
  - Swollen tongue [None]

NARRATIVE: CASE EVENT DATE: 20201128
